FAERS Safety Report 18811431 (Version 2)
Quarter: 2021Q4

REPORT INFORMATION
  Report Type: Spontaneous
  Country: US (occurrence: US)
  Receive Date: 20210129
  Receipt Date: 20211214
  Transmission Date: 20220304
  Serious: Yes (Hospitalization)
  Sender: FDA-Public Use
  Company Number: US-ELI_LILLY_AND_COMPANY-US202101011126

PATIENT
  Sex: Male

DRUGS (5)
  1. HUMALOG [Suspect]
     Active Substance: INSULIN LISPRO
     Indication: Type 2 diabetes mellitus
     Dosage: UNK UNK, PRN
     Route: 065
     Dates: start: 2011
  2. INSULIN LISPRO [Suspect]
     Active Substance: INSULIN LISPRO
     Indication: Type 2 diabetes mellitus
     Dosage: UNK UNK, PRN
     Route: 065
     Dates: start: 202011
  3. INSULIN GLARGINE [Suspect]
     Active Substance: INSULIN GLARGINE
     Indication: Product used for unknown indication
     Dosage: UNK UNK, UNKNOWN
     Route: 065
  4. LANTUS [Concomitant]
     Active Substance: INSULIN GLARGINE
     Indication: Type 2 diabetes mellitus
     Dosage: 20 U, EACH MORNING
  5. LANTUS [Concomitant]
     Active Substance: INSULIN GLARGINE
     Dosage: 25 U, BID

REACTIONS (9)
  - Blood glucose increased [Unknown]
  - Diabetic ketoacidosis [Recovered/Resolved]
  - Diabetic coma [Recovered/Resolved]
  - Cardiac disorder [Unknown]
  - Blood glucose increased [Recovered/Resolved]
  - Diabetes mellitus inadequate control [Unknown]
  - Blood glucose decreased [Recovered/Resolved]
  - Spinal fracture [Unknown]
  - Fall [Unknown]

NARRATIVE: CASE EVENT DATE: 20130101
